FAERS Safety Report 26009273 (Version 4)
Quarter: 2025Q4

REPORT INFORMATION
  Report Type: Spontaneous
  Country: US (occurrence: US)
  Receive Date: 20251107
  Receipt Date: 20251215
  Transmission Date: 20260117
  Serious: Yes (Other)
  Sender: VELOXIS PHARMACEUTICALS
  Company Number: US-VELOXIS PHARMACEUTICALS, INC.-2025-VEL-04075

PATIENT
  Age: 52 Year
  Sex: Male

DRUGS (11)
  1. TARPEYO [Suspect]
     Active Substance: BUDESONIDE
     Indication: IgA nephropathy
     Dosage: TAKE 4 CAPSULES (16 MG) BY MOUTH ONCE DAILY
     Route: 061
     Dates: start: 20251008, end: 20251210
  2. TARPEYO [Suspect]
     Active Substance: BUDESONIDE
     Dosage: 1 CAPSULE QD FOR 7 DAYS
     Route: 061
  3. TARPEYO [Suspect]
     Active Substance: BUDESONIDE
     Dosage: UNK
     Route: 061
  4. CEFIXIME [Concomitant]
     Active Substance: CEFIXIME
     Indication: Product used for unknown indication
     Dosage: UNK
  5. BENADRYL [Concomitant]
     Active Substance: DIPHENHYDRAMINE HYDROCHLORIDE
     Indication: Product used for unknown indication
     Dosage: UNK
  6. EPIPEN [Concomitant]
     Active Substance: EPINEPHRINE
     Indication: Product used for unknown indication
     Dosage: UNK
  7. HYDROXYZINE [Concomitant]
     Active Substance: HYDROXYZINE HYDROCHLORIDE
     Indication: Product used for unknown indication
     Dosage: UNK
  8. LISINOPRIL [Concomitant]
     Active Substance: LISINOPRIL
     Indication: Product used for unknown indication
     Dosage: UNK
  9. PRAVASTATIN [Concomitant]
     Active Substance: PRAVASTATIN
     Indication: Product used for unknown indication
     Dosage: UNK
  10. PRISTIQ EXTENDED-RELEASE [Concomitant]
     Active Substance: DESVENLAFAXINE SUCCINATE
     Indication: Product used for unknown indication
     Dosage: UNK
  11. CYCLOBENZAPRINE [Concomitant]
     Active Substance: CYCLOBENZAPRINE
     Indication: Product used for unknown indication
     Dosage: UNK

REACTIONS (11)
  - Renal impairment [Unknown]
  - Irritability [Unknown]
  - Agitation [Unknown]
  - Mood swings [Unknown]
  - Therapeutic response unexpected [Unknown]
  - Starvation [Unknown]
  - Stress at work [Unknown]
  - Blood pressure increased [Unknown]
  - Weight increased [Unknown]
  - Underdose [Unknown]
  - Psoriasis [Unknown]

NARRATIVE: CASE EVENT DATE: 20251112
